FAERS Safety Report 9714924 (Version 2)
Quarter: 2013Q4

REPORT INFORMATION
  Report Type: Report from Study
  Country: JP (occurrence: JP)
  Receive Date: 20131126
  Receipt Date: 20131204
  Transmission Date: 20140711
  Serious: Yes (Death)
  Sender: FDA-Public Use
  Company Number: JP-PFIZER INC-2013334805

PATIENT
  Age: 30 Year
  Sex: Male
  Weight: 51 kg

DRUGS (14)
  1. REVATIO [Suspect]
     Indication: PULMONARY ARTERIAL HYPERTENSION
     Dosage: 10 MG, 3X/DAY
     Route: 048
     Dates: start: 20081024, end: 20081027
  2. REVATIO [Suspect]
     Dosage: 20 MG, 3X/DAY
     Route: 048
     Dates: start: 20081028
  3. WARFARIN [Concomitant]
     Dosage: UNK
     Route: 048
     Dates: start: 20081029, end: 20081206
  4. SUBACILLIN [Concomitant]
     Dosage: UNK
     Route: 042
     Dates: end: 20081025
  5. MEROPEN [Concomitant]
     Dosage: UNK
     Route: 042
     Dates: start: 20081025, end: 20081127
  6. TARGOCID [Concomitant]
     Dosage: UNK
     Route: 042
     Dates: start: 20081025, end: 20081115
  7. DOBUTAMINE [Concomitant]
     Dosage: UNK
     Route: 042
     Dates: end: 20081106
  8. MILRILA [Concomitant]
     Dosage: UNK
     Route: 048
     Dates: end: 20081030
  9. HANP [Concomitant]
     Dosage: UNK
     Route: 042
     Dates: end: 20081030
  10. HYDROCORTONE [Concomitant]
     Dosage: UNK
     Route: 042
     Dates: end: 20081120
  11. VANCOMYCIN [Concomitant]
     Dosage: UNK
     Route: 042
     Dates: start: 20081115
  12. DIGOSIN [Concomitant]
     Dosage: UNK
     Route: 042
     Dates: start: 20081107, end: 20081118
  13. INOVAN [Concomitant]
     Dosage: UNK
     Route: 042
     Dates: start: 20081130
  14. ONOACT [Concomitant]
     Dosage: UNK
     Route: 042
     Dates: start: 20081203

REACTIONS (1)
  - Respiratory tract haemorrhage [Fatal]
